FAERS Safety Report 10687654 (Version 1)
Quarter: 2014Q4

REPORT INFORMATION
  Report Type: Spontaneous
  Country: US (occurrence: None)
  Receive Date: 20141230
  Receipt Date: 20141230
  Transmission Date: 20150529
  Serious: Yes (Hospitalization, Other)
  Sender: FDA-Public Use
  Company Number: NSR_01736_2014

PATIENT
  Age: 65 Year
  Sex: Female

DRUGS (7)
  1. METFORMIN [Concomitant]
     Active Substance: METFORMIN HYDROCHLORIDE
  2. SIMVASTATIN. [Concomitant]
     Active Substance: SIMVASTATIN
  3. NORVASC [Concomitant]
     Active Substance: AMLODIPINE BESYLATE
  4. LISINOPRIL. [Concomitant]
     Active Substance: LISINOPRIL
  5. TYLENOL [Concomitant]
     Active Substance: ACETAMINOPHEN
  6. NEURONTIN [Concomitant]
     Active Substance: GABAPENTIN
  7. BACLOFEN. [Suspect]
     Active Substance: BACLOFEN
     Indication: MUSCULOSKELETAL DISCOMFORT
     Route: 048

REACTIONS (6)
  - Agitation [None]
  - Pyrexia [None]
  - Refusal of treatment by patient [None]
  - Paranoia [None]
  - Bacterial test positive [None]
  - Delirium [None]
